FAERS Safety Report 26125320 (Version 2)
Quarter: 2025Q4

REPORT INFORMATION
  Report Type: Spontaneous
  Country: GB (occurrence: GB)
  Receive Date: 20251205
  Receipt Date: 20251230
  Transmission Date: 20260118
  Serious: Yes (Death, Other)
  Sender: BAYER HEALTHCARE PHARMACEUTICALS INC.
  Company Number: None

PATIENT
  Sex: Female

DRUGS (20)
  1. CIPROFLOXACIN [Suspect]
     Active Substance: CIPROFLOXACIN
     Indication: Osteomyelitis
     Dosage: 500 MG, BID
     Route: 048
     Dates: start: 20251006
  2. DOXYCYCLINE [Concomitant]
     Active Substance: DOXYCYCLINE
     Indication: Osteomyelitis
  3. DILTIAZEM [Concomitant]
     Active Substance: DILTIAZEM
  4. OMEPRAZOLE [Concomitant]
     Active Substance: OMEPRAZOLE
     Route: 048
  5. ALENDRONIC ACID [Concomitant]
     Active Substance: ALENDRONIC ACID
  6. COLCHICINE [Concomitant]
     Active Substance: COLCHICINE
  7. LISINOPRIL [Concomitant]
     Active Substance: LISINOPRIL
  8. MONTELUKAST [Concomitant]
     Active Substance: MONTELUKAST
  9. SIMVASTATIN [Concomitant]
     Active Substance: SIMVASTATIN
  10. MEPOLIZUMAB [Concomitant]
     Active Substance: MEPOLIZUMAB
  11. BECLOMETHASONE [Concomitant]
     Active Substance: BECLOMETHASONE
     Route: 045
  12. ASPIRIN [Concomitant]
     Active Substance: ASPIRIN
     Route: 048
  13. CALCIUM CARBONATE [Concomitant]
     Active Substance: CALCIUM CARBONATE
     Route: 048
  14. CICLESONIDE [Concomitant]
     Active Substance: CICLESONIDE
     Route: 045
  15. ISOSORBIDE MONONITRATE [Concomitant]
     Active Substance: ISOSORBIDE MONONITRATE
     Route: 048
  16. DIGOXIN [Concomitant]
     Active Substance: DIGOXIN
  17. ALBUTEROL [Concomitant]
     Active Substance: ALBUTEROL
  18. ACLIDINIUM BROMIDE [Concomitant]
     Active Substance: ACLIDINIUM BROMIDE
     Route: 045
  19. FORMOTEROL [Concomitant]
     Active Substance: FORMOTEROL
     Route: 045
  20. LINAGLIPTIN [Concomitant]
     Active Substance: LINAGLIPTIN

REACTIONS (4)
  - Aspiration [Fatal]
  - Seizure [Not Recovered/Not Resolved]
  - Cerebrovascular disorder [Unknown]
  - Electrolyte imbalance [Unknown]

NARRATIVE: CASE EVENT DATE: 20251011
